FAERS Safety Report 15153383 (Version 1)
Quarter: 2018Q3

REPORT INFORMATION
  Report Type: Spontaneous
  Country: US (occurrence: US)
  Receive Date: 20180717
  Receipt Date: 20180717
  Transmission Date: 20181010
  Serious: No
  Sender: FDA-Public Use
  Company Number: US-BRISTOL-MYERS SQUIBB COMPANY-BMS-2018-064581

PATIENT
  Sex: Male

DRUGS (2)
  1. ZOFRAN [Concomitant]
     Active Substance: ONDANSETRON HYDROCHLORIDE
     Indication: NAUSEA
     Route: 065
  2. OPDIVO [Suspect]
     Active Substance: NIVOLUMAB
     Indication: HEPATIC CANCER
     Dosage: UNAVAILABLE
     Route: 042
     Dates: start: 201806

REACTIONS (4)
  - Renal pain [Recovered/Resolved]
  - Musculoskeletal pain [Recovered/Resolved]
  - Thyroid disorder [Unknown]
  - Spinal pain [Recovered/Resolved]
